FAERS Safety Report 6836044-X (Version None)
Quarter: 2010Q3

REPORT INFORMATION
  Report Type: 
  Country: None (occurrence: None)
  Receive Date: 20100713
  Receipt Date: 20100705
  Transmission Date: 20110219
  Serious: Yes (Hospitalization)
  Sender: FDA-Public Use
  Company Number: B0664520A

PATIENT
  Age: 70 Year
  Sex: Male

DRUGS (7)
  1. PAXIL [Suspect]
     Indication: PRODUCT USED FOR UNKNOWN INDICATION
     Route: 048
     Dates: start: 20100201
  2. BUPRENORPHINE HCL [Concomitant]
     Indication: SCIATICA
     Route: 065
  3. TEGRETOL [Concomitant]
     Route: 048
     Dates: start: 20100201
  4. DIAZEPAM [Concomitant]
     Route: 065
     Dates: start: 20100201
  5. CODEINE PHOSPHATE [Concomitant]
     Indication: SCIATICA
     Route: 048
     Dates: start: 20100204
  6. CODEINE PHOSPHATE [Concomitant]
     Route: 048
  7. FENTANYL [Concomitant]
     Indication: SCIATICA
     Dosage: 2.1MG PER DAY

REACTIONS (3)
  - DRUG ERUPTION [None]
  - ERYTHEMA [None]
  - PRURITUS [None]
